FAERS Safety Report 9521302 (Version 1)
Quarter: 2013Q3

REPORT INFORMATION
  Report Type: Spontaneous
  Country: US (occurrence: None)
  Receive Date: 20130911
  Receipt Date: 20130911
  Transmission Date: 20140520
  Serious: Yes (Other)
  Sender: FDA-Public Use
  Company Number: 001596096A

PATIENT
  Age: 50 Year
  Sex: Female

DRUGS (4)
  1. PROACTIV SOLUTION RENEWING CLEANSER [Suspect]
     Indication: ACNE
     Dosage: ONCE DERMAL
     Dates: start: 20130824
  2. PROACTIV SOLUTION REPAIRING TREATMENT [Suspect]
     Indication: ACNE
     Dosage: ONCE DERMAL
     Dates: start: 20130824
  3. PROACTIV SOLUTION ADVANCED DAILY OIL CONTROL [Suspect]
     Indication: ACNE
     Dosage: ONCE DERMAL
     Dates: start: 20130824
  4. PROACTIV SOLUTION OIL FREE MOISTURE SPF15 [Suspect]
     Indication: ACNE
     Dosage: ONCE DERMAL
     Dates: start: 20130824

REACTIONS (1)
  - Urticaria [None]
